FAERS Safety Report 7791337-7 (Version None)
Quarter: 2011Q4

REPORT INFORMATION
  Report Type: 
  Country: None (occurrence: None)
  Receive Date: 20111003
  Receipt Date: 20110921
  Transmission Date: 20120403
  Serious: No
  Sender: FDA-Public Use
  Company Number: US-BIOGENIDEC-2011BI036393

PATIENT
  Age: 57 Year
  Sex: Male

DRUGS (5)
  1. AVONEX [Suspect]
     Route: 030
     Dates: start: 19990107
  2. AVONEX [Suspect]
     Indication: MULTIPLE SCLEROSIS
     Route: 030
     Dates: start: 20000412, end: 20040101
  3. AVONEX [Suspect]
     Route: 030
     Dates: start: 20040101, end: 20040101
  4. MOTRIN [Concomitant]
     Indication: PREMEDICATION
     Dates: start: 19990101
  5. AVONEX [Suspect]
     Route: 030
     Dates: start: 20040101

REACTIONS (1)
  - MUSCULOSKELETAL DISORDER [None]
